FAERS Safety Report 4819930-1 (Version None)
Quarter: 2005Q4

REPORT INFORMATION
  Report Type: 
  Country: None (occurrence: None)
  Receive Date: 20051102
  Receipt Date: 20051020
  Transmission Date: 20060501
  Serious: Yes (Hospitalization, Other)
  Sender: FDA-Public Use
  Company Number: 2005145294

PATIENT
  Age: 93 Year
  Sex: Female

DRUGS (8)
  1. XANAX [Suspect]
     Indication: ILL-DEFINED DISORDER
     Dosage: 1 MG )0.5 MG 2 IN 1 D), ORAL
     Route: 048
  2. DILTIAZEM HYDROCHLORIDE [Suspect]
     Indication: CARDIAC DISORDER
     Dosage: 200 MG (1 IN 1 D), ORAL
     Route: 048
  3. MEPRONIZINE (ACEPROMETAZINE, MEPROBAMATE) [Suspect]
     Indication: ILL-DEFINED DISORDER
     Dosage: 410 MG (1 IN 1 D), ORAL
     Route: 048
  4. EFFEXOR [Suspect]
     Indication: ILL-DEFINED DISORDER
     Dosage: 37.5 MG, ORAL
     Route: 048
     Dates: start: 20030815, end: 20050713
  5. NITROGLYCERIN [Suspect]
     Indication: ILL-DEFINED DISORDER
     Dosage: (AS NECESSARY), ORAL
     Route: 048
  6. LEVOTHYROXINE SODIUM [Concomitant]
  7. DEBRIDAT (TRIMEBUTINE) [Concomitant]
  8. FORLAX (MACROGOL) [Concomitant]

REACTIONS (8)
  - ATRIOVENTRICULAR BLOCK FIRST DEGREE [None]
  - BLOOD POTASSIUM INCREASED [None]
  - FALL [None]
  - GENERAL PHYSICAL HEALTH DETERIORATION [None]
  - HEAD INJURY [None]
  - HYPONATRAEMIA [None]
  - NODAL RHYTHM [None]
  - SUBDURAL HAEMATOMA [None]
